FAERS Safety Report 12110574 (Version 1)
Quarter: 2016Q1

REPORT INFORMATION
  Report Type: Spontaneous
  Country: None (occurrence: GR)
  Receive Date: 20160224
  Receipt Date: 20160224
  Transmission Date: 20160526
  Serious: Yes (Other)
  Sender: FDA-Public Use
  Company Number: GR-MEDAC PHARMA, INC.-1048347

PATIENT
  Age: 48 Year
  Sex: Female

DRUGS (4)
  1. FORTATHRIN [Suspect]
     Active Substance: INDOMETHACIN
     Route: 065
  2. METHOTREXATE SODIUM. [Suspect]
     Active Substance: METHOTREXATE SODIUM
     Route: 065
  3. METOJECT [Suspect]
     Active Substance: METHOTREXATE SODIUM
     Indication: PSORIASIS
     Dates: start: 2010
  4. METHYLPREDNISOLONE ACETATE. [Suspect]
     Active Substance: METHYLPREDNISOLONE ACETATE
     Route: 065

REACTIONS (8)
  - Diabetes mellitus [Unknown]
  - Microlithiasis [Unknown]
  - Urinary tract infection [Unknown]
  - Condition aggravated [None]
  - Autoimmune hepatitis [Unknown]
  - Hepatic steatosis [Unknown]
  - Psoriasis [None]
  - Hypertension [Unknown]
